FAERS Safety Report 8848271 (Version 1)
Quarter: 2012Q4

REPORT INFORMATION
  Report Type: 
  Country: SE (occurrence: SE)
  Receive Date: 20121018
  Receipt Date: 20121018
  Transmission Date: 20130627
  Serious: Yes (Other)
  Sender: FDA-Public Use
  Company Number: SE-ROCHE-1145873

PATIENT
  Age: 50 Year
  Sex: Female

DRUGS (2)
  1. PEGASYS [Suspect]
     Indication: HEPATITIS C
     Route: 065
     Dates: start: 201108, end: 201108
  2. COPEGUS [Suspect]
     Indication: HEPATITIS C
     Dosage: 3+0+2
     Route: 065
     Dates: start: 201108, end: 201108

REACTIONS (2)
  - Deafness [Unknown]
  - Mucosal dryness [Unknown]
